FAERS Safety Report 13910458 (Version 1)
Quarter: 2017Q3

REPORT INFORMATION
  Report Type: Spontaneous
  Country: US (occurrence: US)
  Receive Date: 20170828
  Receipt Date: 20170828
  Transmission Date: 20171127
  Serious: No
  Sender: FDA-Public Use
  Company Number: US-ALLERGAN-1710511US

PATIENT
  Sex: Male

DRUGS (2)
  1. FETZIMA [Suspect]
     Active Substance: LEVOMILNACIPRAN HYDROCHLORIDE
     Indication: FIBROMYALGIA
     Dosage: 20 MG, QD
     Route: 048
     Dates: start: 20170313, end: 20170314
  2. VALIUM [Concomitant]
     Active Substance: DIAZEPAM
     Indication: SLEEP DISORDER
     Route: 048

REACTIONS (15)
  - Headache [Recovering/Resolving]
  - Paraesthesia [Recovering/Resolving]
  - Off label use [Unknown]
  - Insomnia [Recovering/Resolving]
  - Irritability [Recovering/Resolving]
  - Anorectal disorder [Not Recovered/Not Resolved]
  - Constipation [Recovering/Resolving]
  - Vision blurred [Recovering/Resolving]
  - Hyperhidrosis [Recovering/Resolving]
  - Swelling [Recovering/Resolving]
  - Pain [Recovering/Resolving]
  - Discomfort [Recovering/Resolving]
  - Vomiting [Recovering/Resolving]
  - Feeding disorder [Recovering/Resolving]
  - Condition aggravated [Unknown]

NARRATIVE: CASE EVENT DATE: 20170314
